FAERS Safety Report 4471932-3 (Version None)
Quarter: 2004Q4

REPORT INFORMATION
  Report Type: 
  Country: None (occurrence: None)
  Receive Date: 20041007
  Receipt Date: 20040930
  Transmission Date: 20050328
  Serious: Yes (Death, Other)
  Sender: FDA-Public Use
  Company Number: CH-2004-031576

PATIENT
  Age: 11 Year
  Sex: Female
  Weight: 36 kg

DRUGS (5)
  1. MAGNEVIST [Suspect]
     Indication: NUCLEAR MAGNETIC RESONANCE IMAGING
     Dosage: 14 ML, INTRAVENOUS
     Route: 042
     Dates: start: 20040820, end: 20040820
  2. LORAZEPAM [Concomitant]
  3. LUMINAL (PHENOBARBITAL) [Concomitant]
  4. NUBAIN   DUPONT PHARMA   (NALBUPHINE HYDROCHLORIDE) [Concomitant]
  5. PHENYTOIN [Concomitant]

REACTIONS (6)
  - ANAPHYLACTOID REACTION [None]
  - ANGIONEUROTIC OEDEMA [None]
  - CONDITION AGGRAVATED [None]
  - CONTRAST MEDIA REACTION [None]
  - MEDULLOBLASTOMA [None]
  - URTICARIA GENERALISED [None]
